FAERS Safety Report 4705465-3 (Version None)
Quarter: 2005Q3

REPORT INFORMATION
  Report Type: 
  Country: None (occurrence: None)
  Receive Date: 20050701
  Receipt Date: 20050622
  Transmission Date: 20060218
  Serious: Yes (Other)
  Sender: FDA-Public Use
  Company Number: PHBS2005NO09022

PATIENT
  Age: 36 Year
  Sex: Male

DRUGS (1)
  1. TEGRETOL [Suspect]
     Route: 065

REACTIONS (6)
  - ANGINA PECTORIS [None]
  - BALANCE DISORDER [None]
  - COORDINATION ABNORMAL [None]
  - DYSPNOEA [None]
  - NYSTAGMUS [None]
  - PYREXIA [None]
